FAERS Safety Report 17949348 (Version 1)
Quarter: 2020Q2

REPORT INFORMATION
  Report Type: Report from Study
  Country: BR (occurrence: BR)
  Receive Date: 20200626
  Receipt Date: 20200626
  Transmission Date: 20200714
  Serious: Yes (Hospitalization)
  Sender: FDA-Public Use
  Company Number: BR-ROCHE-2628679

PATIENT
  Sex: Female
  Weight: 82 kg

DRUGS (1)
  1. ACTEMRA [Suspect]
     Active Substance: TOCILIZUMAB
     Indication: RHEUMATOID ARTHRITIS
     Dosage: LATEST INFUSION WAS ON 01/MAR/2019
     Route: 042
     Dates: start: 20180501, end: 20190301

REACTIONS (1)
  - Renal disorder [Recovered/Resolved]
